FAERS Safety Report 4352372-4 (Version None)
Quarter: 2004Q2

REPORT INFORMATION
  Report Type: 
  Country: None (occurrence: None)
  Receive Date: 20040428
  Receipt Date: 20040420
  Transmission Date: 20050107
  Serious: Yes (Hospitalization)
  Sender: FDA-Public Use
  Company Number: IT-JNJFOC-20040404525

PATIENT
  Age: 44 Year
  Sex: Female

DRUGS (2)
  1. TRAMADOL HCL [Suspect]
     Indication: NECK PAIN
     Dosage: 100 MG, 1 IN 1 DAY, ORAL
     Route: 048
     Dates: start: 20040112, end: 20040112
  2. URBASON (METHYLPREDNISOLONE) [Concomitant]

REACTIONS (4)
  - AKINESIA [None]
  - ASTHENIA [None]
  - DYSLALIA [None]
  - SOPOR [None]
